FAERS Safety Report 9068827 (Version 1)
Quarter: 2013Q1

REPORT INFORMATION
  Report Type: Spontaneous
  Country: JP (occurrence: None)
  Receive Date: 20130122
  Receipt Date: 20130122
  Transmission Date: 20140127
  Serious: Yes (Other)
  Sender: FDA-Public Use
  Company Number: DSA_61971_2013

PATIENT
  Age: 47 None
  Sex: Female

DRUGS (5)
  1. FLUOROURACIL (FLUOROURACIL) [Suspect]
  2. AFLIBERCEPT (AFLIBERCEPT) SOLUTION FOR INJECTION [Suspect]
     Indication: COLORECTAL CANCER
     Dosage: (FREQUENCY UNSPECIFIED)),
  3. BEVACIZUMAB [Suspect]
     Indication: COLORECTAL CANCER
     Dosage: (FREQUENCY UNSPECIFIED)),
  4. FLUOROURACIL [Suspect]
     Indication: COLORECTAL CANCER
     Route: 048
  5. FOLINIC ACID [Suspect]
     Indication: COLORECTAL CANCER

REACTIONS (1)
  - Neutropenia [None]
